FAERS Safety Report 10036501 (Version 1)
Quarter: 2014Q1

REPORT INFORMATION
  Report Type: Spontaneous
  Country: DE (occurrence: DE)
  Receive Date: 20140326
  Receipt Date: 20140326
  Transmission Date: 20141002
  Serious: Yes (Other)
  Sender: FDA-Public Use
  Company Number: PHHY2014DE035787

PATIENT
  Age: 70 Year
  Sex: Male

DRUGS (2)
  1. ZOMETA [Suspect]
     Dosage: EVERY 4 WEEKS
  2. ZOMETA [Suspect]
     Dosage: UNK UKN, EVERY 4 WEEKS

REACTIONS (3)
  - Fall [Unknown]
  - Femur fracture [Not Recovered/Not Resolved]
  - Impaired healing [Unknown]
